FAERS Safety Report 8105614-3 (Version None)
Quarter: 2012Q1

REPORT INFORMATION
  Report Type: 
  Country: None (occurrence: None)
  Receive Date: 20120201
  Receipt Date: 20120119
  Transmission Date: 20120608
  Serious: Yes (Hospitalization, Other)
  Sender: FDA-Public Use
  Company Number: ES-ELI_LILLY_AND_COMPANY-ES201201005823

PATIENT
  Sex: Female
  Weight: 63 kg

DRUGS (7)
  1. ISOSORBIDE MONONITRATE [Concomitant]
     Indication: CARDIAC DISORDER
     Dosage: 0.5 DF, QD
     Route: 048
     Dates: start: 20060101
  2. TRAMADOL HCL [Concomitant]
     Indication: ANALGESIC THERAPY
     Dosage: 3 DF, QD
     Route: 048
     Dates: start: 20070101, end: 20111201
  3. SINTROM [Concomitant]
     Indication: ANTIPLATELET THERAPY
     Dosage: UNK, OTHER AS PER INR
     Route: 048
     Dates: start: 20060101
  4. FUROSEMIDE [Concomitant]
     Indication: HYPERTENSION
     Dosage: 1 DF, QD
     Route: 048
     Dates: start: 20060101
  5. BISOPROLOL FUMARATE [Concomitant]
     Indication: HYPERTENSION
     Dosage: 2.5 MG, QD
     Route: 048
     Dates: start: 20100101
  6. FORTEO [Suspect]
     Indication: OSTEOPOROSIS
     Dosage: 20 UG, QD
     Route: 058
     Dates: start: 20101217, end: 20111212
  7. ATACAND [Concomitant]
     Indication: HYPERTENSION
     Dosage: 4 MG, QD
     Route: 048
     Dates: start: 20060101

REACTIONS (1)
  - COLON NEOPLASM [None]
